FAERS Safety Report 17813719 (Version 1)
Quarter: 2020Q2

REPORT INFORMATION
  Report Type: Spontaneous
  Country: US (occurrence: US)
  Receive Date: 20200521
  Receipt Date: 20200521
  Transmission Date: 20200714
  Serious: Yes (Hospitalization)
  Sender: FDA-Public Use
  Company Number: US-PAIPHARMA-2020-US-009516

PATIENT
  Age: 7 Year
  Sex: Female
  Weight: 22.68 kg

DRUGS (1)
  1. RANITIDINE SYRUP (RANITIDINE ORAL SOLUTION USP) [Suspect]
     Active Substance: RANITIDINE
     Indication: GASTROOESOPHAGEAL REFLUX DISEASE
     Dosage: 15ML UNKNOWN IF DAILY OR AS NEEDED
     Route: 048
     Dates: start: 20190604, end: 20191227

REACTIONS (3)
  - Abdominal discomfort [Unknown]
  - Ovarian cancer [Unknown]
  - Pyrexia [Unknown]

NARRATIVE: CASE EVENT DATE: 20191227
